FAERS Safety Report 4411680-9 (Version None)
Quarter: 2004Q3

REPORT INFORMATION
  Report Type: 
  Country: None (occurrence: None)
  Receive Date: 20040730
  Receipt Date: 20040719
  Transmission Date: 20050211
  Serious: Yes (Other)
  Sender: FDA-Public Use
  Company Number: PHBS2004AU09630

PATIENT
  Age: 58 Year
  Sex: Male

DRUGS (12)
  1. SIMULECT [Suspect]
     Indication: RENAL TRANSPLANT
     Dosage: 20 MG, ONCE/SINGLE
     Route: 065
  2. SIMULECT [Suspect]
     Dosage: 20 MG, ONCE/SINGLE
     Route: 065
  3. NEORAL [Suspect]
     Indication: RENAL TRANSPLANT
     Dosage: 4.4 MG/KG, BID
     Route: 065
  4. DILTIAZEM [Concomitant]
     Dosage: 240 MG/D
  5. PREDNISOLONE [Concomitant]
     Dosage: 0.3 MG/KG/D
  6. CELLCEPT [Suspect]
     Dosage: 1 G, BID
  7. ASPIRIN [Concomitant]
  8. RANITIDINE [Concomitant]
  9. AMPHOTERICIN B [Concomitant]
  10. CALCITRIOL [Concomitant]
  11. SULFAMETHOXAZOLE + TRIMETHOPRIM [Concomitant]
  12. TACROLIMUS [Suspect]

REACTIONS (16)
  - BILE DUCT CANCER [None]
  - BILE DUCT OBSTRUCTION [None]
  - BLOOD ALKALINE PHOSPHATASE INCREASED [None]
  - BLOOD BILIRUBIN INCREASED [None]
  - CHOLELITHIASIS [None]
  - DRUG LEVEL DECREASED [None]
  - DRUG LEVEL INCREASED [None]
  - GAMMA-GLUTAMYLTRANSFERASE INCREASED [None]
  - HAEMATEMESIS [None]
  - HYPOALBUMINAEMIA [None]
  - ILEUS PARALYTIC [None]
  - JAUNDICE [None]
  - MALLORY-WEISS SYNDROME [None]
  - NAUSEA [None]
  - PANCYTOPENIA [None]
  - VOMITING [None]
